FAERS Safety Report 4359280-3 (Version None)
Quarter: 2004Q2

REPORT INFORMATION
  Report Type: 
  Country: None (occurrence: None)
  Receive Date: 20040512
  Receipt Date: 20040428
  Transmission Date: 20050107
  Serious: Yes (Hospitalization)
  Sender: FDA-Public Use
  Company Number: FABR-10557

PATIENT
  Age: 82 Year
  Sex: Male
  Weight: 46 kg

DRUGS (16)
  1. FABRAZYME [Suspect]
     Indication: FABRY'S DISEASE
     Dosage: 45 MG QWK IV
     Route: 042
     Dates: start: 20010321
  2. ENALAPRIL MALEATE [Concomitant]
  3. PIMOBENDAN [Concomitant]
  4. NICORANDIL [Concomitant]
  5. SODIUM ALGINATE [Concomitant]
  6. FUROSEMIDE [Concomitant]
  7. SPIRONOLACTONE [Concomitant]
  8. CARVEDILOL [Concomitant]
  9. ASPIRIN [Concomitant]
  10. ACETAMINOPHEN [Concomitant]
  11. HYDROXYZINE PAMOATE [Concomitant]
  12. DIFLUCORTOLONE VALERATE LIDOCAINE [Concomitant]
  13. AZULENE SULFONATE SODIUM [Concomitant]
  14. WARFARIN POTASSIUM [Concomitant]
  15. UREA [Concomitant]
  16. OMEPRAZOLE [Concomitant]

REACTIONS (2)
  - CARDIAC FAILURE CONGESTIVE [None]
  - PNEUMONIA [None]
